FAERS Safety Report 8067032-6 (Version None)
Quarter: 2012Q1

REPORT INFORMATION
  Report Type: 
  Country: None (occurrence: None)
  Receive Date: 20120124
  Receipt Date: 20120119
  Transmission Date: 20120608
  Serious: Yes (Other)
  Sender: FDA-Public Use
  Company Number: DE-ABBOTT-12P-062-0890184-00

PATIENT
  Sex: Female
  Weight: 46 kg

DRUGS (2)
  1. IBUPROFEN [Concomitant]
     Indication: CROHN'S DISEASE
  2. HUMIRA [Suspect]
     Indication: CROHN'S DISEASE
     Route: 058
     Dates: start: 20100823, end: 20111120

REACTIONS (1)
  - SYSTEMIC LUPUS ERYTHEMATOSUS [None]
